FAERS Safety Report 9694983 (Version 1)
Quarter: 2013Q4

REPORT INFORMATION
  Report Type: Report from Study
  Country: US (occurrence: US)
  Receive Date: 20131119
  Receipt Date: 20131119
  Transmission Date: 20140711
  Serious: Yes (Hospitalization)
  Sender: FDA-Public Use
  Company Number: US-ROCHE-1303250

PATIENT
  Age: 62 Year
  Sex: Male

DRUGS (11)
  1. LUCENTIS [Suspect]
     Indication: PRODUCT USED FOR UNKNOWN INDICATION
     Dosage: LEFT EYE
     Route: 065
     Dates: start: 20131017
  2. LUCENTIS [Suspect]
     Dosage: RIGHT EYE
     Route: 065
     Dates: start: 20131107
  3. AVASTIN [Suspect]
     Indication: PRODUCT USED FOR UNKNOWN INDICATION
     Dosage: RIGHT EYE
     Route: 065
     Dates: start: 20130829
  4. ASPIRIN [Concomitant]
     Route: 065
  5. CARVEDILOL [Concomitant]
     Route: 065
  6. FISH OIL [Concomitant]
     Route: 065
  7. JANUMET [Concomitant]
     Route: 065
  8. LANTUS [Concomitant]
     Dosage: 100U/ML
     Route: 058
  9. LISINOPRIL [Concomitant]
     Route: 065
  10. NOVOLOG [Concomitant]
     Dosage: 100U/ML
     Route: 058
  11. VYTORIN [Concomitant]
     Route: 065

REACTIONS (5)
  - Renal disorder [Unknown]
  - Dyspnoea [Unknown]
  - Vitreous floaters [Unknown]
  - Photopsia [Unknown]
  - Vision blurred [Unknown]
